FAERS Safety Report 4735589-6 (Version None)
Quarter: 2005Q3

REPORT INFORMATION
  Report Type: 
  Country: None (occurrence: None)
  Receive Date: 20050805
  Receipt Date: 20050419
  Transmission Date: 20060218
  Serious: Yes (Hospitalization)
  Sender: FDA-Public Use
  Company Number: US-MERCK-0504USA03694

PATIENT
  Age: 68 Year
  Sex: Female
  Weight: 61 kg

DRUGS (4)
  1. VIOXX [Suspect]
     Indication: ARTHRITIS
     Route: 048
     Dates: start: 20000118, end: 20030818
  2. AMBIEN [Concomitant]
     Route: 065
     Dates: start: 20000522
  3. COMBIVENT [Concomitant]
     Route: 065
     Dates: start: 20000522
  4. FLOVENT [Concomitant]
     Route: 065
     Dates: start: 20000503

REACTIONS (2)
  - CORONARY ARTERY DISEASE [None]
  - MYOCARDIAL INFARCTION [None]
